FAERS Safety Report 15126696 (Version 3)
Quarter: 2018Q3

REPORT INFORMATION
  Report Type: Report from Study
  Country: GB (occurrence: GB)
  Receive Date: 20180710
  Receipt Date: 20180827
  Transmission Date: 20181010
  Serious: Yes (Death, Hospitalization)
  Sender: FDA-Public Use
  Company Number: GB-PFIZER INC-2018274949

PATIENT
  Age: 50 Year
  Sex: Male
  Weight: 84.6 kg

DRUGS (8)
  1. SRA737 [Suspect]
     Active Substance: INVESTIGATIONAL PRODUCT
     Indication: ADENOCARCINOMA OF COLON
     Dosage: 500 MG, SINGLE DOSE ON DAY ?7
     Route: 048
     Dates: start: 20180605, end: 20180605
  2. SRA737 [Suspect]
     Active Substance: INVESTIGATIONAL PRODUCT
     Dosage: 500 MG, CYCLIC (ON DAYS 2, 3, 9, 10, 16, AND 17 OF EACH 28?DAY CYCLE)
     Route: 048
     Dates: start: 20180613, end: 20180614
  3. CANNABIS SATIVA OIL [Concomitant]
     Active Substance: CANNABIS SATIVA SUBSP. INDICA TOP
     Dosage: UNK
     Dates: start: 20180401
  4. AMOXICILLIN. [Concomitant]
     Active Substance: AMOXICILLIN
     Dosage: UNK
     Dates: start: 20180618
  5. CIPROFLOXACIN/DEXAMETHASONE [Concomitant]
     Dosage: UNK
     Dates: start: 20180618, end: 20180620
  6. GEMCITABINE HYDROCHLORIDE. [Suspect]
     Active Substance: GEMCITABINE HYDROCHLORIDE
     Indication: ADENOCARCINOMA OF COLON
     Dosage: 150 MG/M2 (304 MG), CYCLIC (ON DAYS 1, 8, AND 15 OF EACH 28 DAY CYCLE)
     Route: 042
     Dates: start: 20180612, end: 20180619
  7. PARACETAMOL [Concomitant]
     Active Substance: ACETAMINOPHEN
     Dosage: UNK
     Dates: start: 20180609
  8. OMEPRAZOLE. [Concomitant]
     Active Substance: OMEPRAZOLE
     Dosage: UNK
     Dates: start: 201709, end: 20180531

REACTIONS (1)
  - Cardiac arrest [Fatal]

NARRATIVE: CASE EVENT DATE: 20180622
